FAERS Safety Report 6553811-0 (Version None)
Quarter: 2010Q1

REPORT INFORMATION
  Report Type: 
  Country: None (occurrence: None)
  Receive Date: 20100122
  Receipt Date: 20100106
  Transmission Date: 20100710
  Serious: Yes (Death, Life-Threatening)
  Sender: FDA-Public Use
  Company Number: 2009AC000307

PATIENT
  Age: 59 Year
  Sex: Female

DRUGS (28)
  1. DIGOXIN [Suspect]
     Dosage: 250 MCG; PO
     Route: 048
     Dates: start: 20071017
  2. DEPO-MEDROL [Concomitant]
  3. PREMPRO [Concomitant]
  4. DIAZEPAM [Concomitant]
  5. POTASSIUIM CHLORIDE [Concomitant]
  6. LEXAPRO [Concomitant]
  7. NADOLOL [Concomitant]
  8. BUTALBITAL/ASA/CAFFEINE [Concomitant]
  9. HYDROCHLOROTHIAZIDE [Concomitant]
  10. LIPITOR [Concomitant]
  11. PROPOXYPHEN-APAP [Concomitant]
  12. TEMAZEPAM [Concomitant]
  13. ALPRAZOLAM [Concomitant]
  14. TRAZODONE HCL [Concomitant]
  15. TRAMADOL HCL [Concomitant]
  16. SIMVASTATIN [Concomitant]
  17. CYCLOBENZAPRINE [Concomitant]
  18. NITROGLYCERIN [Concomitant]
  19. FLOVENT HFA [Concomitant]
  20. LORATADINE [Concomitant]
  21. RANITIDINE [Concomitant]
  22. ABILIFY [Concomitant]
  23. PROAIR HFA [Concomitant]
  24. TRICOR [Concomitant]
  25. TOPAMAX [Concomitant]
  26. VIOXX [Concomitant]
  27. FOLIC ACID [Concomitant]
  28. VIT D [Concomitant]

REACTIONS (7)
  - ANGINA UNSTABLE [None]
  - DIZZINESS [None]
  - DYSPNOEA [None]
  - ECONOMIC PROBLEM [None]
  - MULTIPLE INJURIES [None]
  - MYALGIA [None]
  - REFUSAL OF TREATMENT BY PATIENT [None]
